FAERS Safety Report 7920223 (Version 12)
Quarter: 2016Q1

REPORT INFORMATION
  Report Type: Report from Study
  Country: CA (occurrence: CA)
  Receive Date: 20110429
  Receipt Date: 20160322
  Transmission Date: 20160526
  Serious: Yes (Other)
  Sender: FDA-Public Use
  Company Number: PHHY2011CA33079

PATIENT
  Age: 51 Year
  Sex: Male

DRUGS (6)
  1. SANDOSTATIN LAR DEPOT [Suspect]
     Active Substance: OCTREOTIDE ACETATE
     Indication: ACROMEGALY
     Dosage: 30 MG, EVERY 3 WEEKS
     Route: 030
     Dates: start: 20070609, end: 20120907
  2. SANDOSTATIN LAR DEPOT [Suspect]
     Active Substance: OCTREOTIDE ACETATE
     Dosage: 30 MG, UNK
     Route: 030
  3. SANDOSTATIN LAR DEPOT [Suspect]
     Active Substance: OCTREOTIDE ACETATE
     Dosage: 30 MG, Q22 DAYS
     Route: 030
  4. SANDOSTATIN LAR DEPOT [Suspect]
     Active Substance: OCTREOTIDE ACETATE
     Dosage: 30 MG, EVERY 4 WEEKS
     Route: 030
  5. SANDOSTATIN LAR DEPOT [Suspect]
     Active Substance: OCTREOTIDE ACETATE
     Dosage: 10 MG, EVERY 5 WEEKS
     Route: 030
  6. SANDOSTATIN LAR DEPOT [Suspect]
     Active Substance: OCTREOTIDE ACETATE
     Dosage: 30 MG, EVERY 22 WEEKS
     Route: 030

REACTIONS (20)
  - Chest discomfort [Unknown]
  - Feeling abnormal [Unknown]
  - Mass [Unknown]
  - Anxiety [Unknown]
  - Insomnia [Unknown]
  - Movement disorder [Unknown]
  - Varicose vein [Unknown]
  - Asthenia [Unknown]
  - Hypoaesthesia [Unknown]
  - Depressed mood [Unknown]
  - Pain [Unknown]
  - Serum ferritin decreased [Unknown]
  - Fatigue [Unknown]
  - Mental disorder [Unknown]
  - Gait disturbance [Unknown]
  - Sputum discoloured [Unknown]
  - Respiratory tract congestion [Unknown]
  - Nasal congestion [Unknown]
  - Muscular weakness [Unknown]
  - Headache [Unknown]

NARRATIVE: CASE EVENT DATE: 201602
